FAERS Safety Report 22270720 (Version 1)
Quarter: 2023Q2

REPORT INFORMATION
  Report Type: Spontaneous
  Country: US (occurrence: US)
  Receive Date: 20230501
  Receipt Date: 20230501
  Transmission Date: 20230721
  Serious: No
  Sender: FDA-Public Use
  Company Number: US-MYLANLABS-2023M1037904

PATIENT
  Sex: Female
  Weight: 69.4 kg

DRUGS (1)
  1. ESTRADIOL TRANSDERMAL SYSTEM [Suspect]
     Active Substance: ESTRADIOL
     Indication: Product used for unknown indication
     Dosage: 0.025 MILLIGRAM, QD (CHANGES WEEKLY)
     Route: 062

REACTIONS (2)
  - Blood cholesterol increased [Unknown]
  - Hyperhidrosis [Unknown]
